FAERS Safety Report 7568138-8 (Version None)
Quarter: 2011Q2

REPORT INFORMATION
  Report Type: 
  Country: None (occurrence: None)
  Receive Date: 20110623
  Receipt Date: 20110616
  Transmission Date: 20111010
  Serious: Yes (Hospitalization)
  Sender: FDA-Public Use
  Company Number: CH-NOVOPROD-330057

PATIENT
  Age: 84 Year
  Sex: Female

DRUGS (6)
  1. ACTRAPID [Suspect]
     Indication: HYPERKALAEMIA
     Dosage: 200 IU PER 30 MIN
     Route: 042
     Dates: start: 20110605, end: 20110605
  2. LASIX [Concomitant]
     Indication: SECONDARY HYPERTENSION
     Dosage: 120 MG, UNK
     Route: 042
     Dates: start: 20110605, end: 20110606
  3. ONDANSETRON [Concomitant]
     Indication: VOMITING
  4. NEXIUM IV [Concomitant]
     Indication: GASTRIC ULCER HAEMORRHAGE
     Dosage: 2 X 40 MG
     Route: 042
     Dates: start: 20110531
  5. METOPROLOL SUCCINATE [Concomitant]
     Indication: PALPITATIONS
     Dosage: 50 MG, BID
     Route: 048
     Dates: start: 20110531
  6. ONDANSETRON [Concomitant]
     Indication: NAUSEA
     Dosage: 4 MG AS NECESSARY
     Route: 042
     Dates: start: 20110605

REACTIONS (3)
  - DRUG ADMINISTRATION ERROR [None]
  - HYPOGLYCAEMIA [None]
  - HYPERHIDROSIS [None]
